FAERS Safety Report 4364923-4 (Version None)
Quarter: 2004Q2

REPORT INFORMATION
  Report Type: 
  Country: None (occurrence: None)
  Receive Date: 20040521
  Receipt Date: 20040510
  Transmission Date: 20050107
  Serious: Yes (Hospitalization)
  Sender: FDA-Public Use
  Company Number: A03200400262

PATIENT
  Age: 69 Year
  Sex: Female
  Weight: 77.1115 kg

DRUGS (5)
  1. ELOXATIN [Suspect]
     Indication: COLORECTAL CANCER METASTATIC
     Dosage: 80 MG/M2 OTHER INTRAVENOUS NOS
     Route: 042
     Dates: start: 20040121, end: 20040121
  2. ELOXATIN [Suspect]
     Indication: METASTASES TO LIVER
     Dosage: 80 MG/M2 OTHER INTRAVENOUS NOS
     Route: 042
     Dates: start: 20040121, end: 20040121
  3. ELOXATIN [Suspect]
     Indication: METASTASES TO LUNG
     Dosage: 80 MG/M2 OTHER INTRAVENOUS NOS
     Route: 042
     Dates: start: 20040121, end: 20040121
  4. LEVOTHYROXINE SODIUM [Concomitant]
  5. ANTI DIABETIC AGENT [Concomitant]

REACTIONS (8)
  - CHILLS [None]
  - HYPERTHERMIA MALIGNANT [None]
  - HYPOGLYCAEMIA [None]
  - JOINT STIFFNESS [None]
  - MUSCULOSKELETAL STIFFNESS [None]
  - NAUSEA [None]
  - VOMITING [None]
  - WHITE BLOOD CELL COUNT INCREASED [None]
